FAERS Safety Report 8256761-7 (Version None)
Quarter: 2012Q2

REPORT INFORMATION
  Report Type: 
  Country: None (occurrence: None)
  Receive Date: 20120403
  Receipt Date: 20120322
  Transmission Date: 20120825
  Serious: Yes (Other)
  Sender: FDA-Public Use
  Company Number: JP-BRISTOL-MYERS SQUIBB COMPANY-16484123

PATIENT
  Sex: Male

DRUGS (5)
  1. CARVEDILOL [Concomitant]
     Route: 048
  2. AMARYL [Concomitant]
     Route: 048
  3. WARFARIN SODIUM [Concomitant]
     Route: 048
  4. METFORMIN HCL [Suspect]
     Indication: DIABETES MELLITUS
     Route: 048
     Dates: start: 20120313
  5. ASPIRIN [Concomitant]
     Route: 048

REACTIONS (5)
  - CONSTIPATION [None]
  - VOMITING [None]
  - NAUSEA [None]
  - CONVULSION [None]
  - ABDOMINAL PAIN [None]
